FAERS Safety Report 19844745 (Version 2)
Quarter: 2021Q4

REPORT INFORMATION
  Report Type: Spontaneous
  Country: US (occurrence: US)
  Receive Date: 20210917
  Receipt Date: 20211124
  Transmission Date: 20220303
  Serious: Yes (Other)
  Sender: FDA-Public Use
  Company Number: US-SA-SAC20210916000284

PATIENT
  Age: 22 Year
  Sex: Male

DRUGS (3)
  1. DUPIXENT [Suspect]
     Active Substance: DUPILUMAB
     Indication: Nasal polyps
     Dosage: 300 MG, QOW
     Route: 058
     Dates: start: 20210713
  2. HYDROXYZIN BLUEFISH [Concomitant]
     Indication: Nasal polyps
     Dosage: 25 MG
  3. HYDROXYZIN BLUEFISH [Concomitant]
     Indication: Anxiety

REACTIONS (7)
  - Bipolar II disorder [Unknown]
  - Anxiety [Unknown]
  - Depression [Unknown]
  - Allergic fungal rhinosinusitis [Unknown]
  - Sinus polyp [Unknown]
  - Allergic sinusitis [Unknown]
  - Ear operation [Unknown]

NARRATIVE: CASE EVENT DATE: 20210101
